FAERS Safety Report 18914558 (Version 1)
Quarter: 2021Q1

REPORT INFORMATION
  Report Type: Report from Study
  Country: US (occurrence: US)
  Receive Date: 20210219
  Receipt Date: 20210219
  Transmission Date: 20210420
  Serious: Yes (Other)
  Sender: FDA-Public Use
  Company Number: US-TAIHO ONCOLOGY  INC-EU-2020-04103

PATIENT
  Age: 78 Year
  Sex: Female

DRUGS (27)
  1. LONSURF [Suspect]
     Active Substance: TIPIRACIL HYDROCHLORIDE\TRIFLURIDINE
     Indication: RECTAL CANCER
     Dosage: DOSE: 80 MG EVERY MORNING AND 60 MG EVERY EVENING
     Route: 048
     Dates: start: 20200613
  2. GARLIC EXTRA [Concomitant]
  3. ZOFRAN [Concomitant]
     Active Substance: ONDANSETRON HYDROCHLORIDE
  4. BENADRYL [Concomitant]
     Active Substance: DIPHENHYDRAMINE HYDROCHLORIDE
  5. CALCIUM [Concomitant]
     Active Substance: CALCIUM
  6. NITROFURANTOIN. [Concomitant]
     Active Substance: NITROFURANTOIN
  7. ZINC. [Concomitant]
     Active Substance: ZINC
  8. HYDROCODONE [Concomitant]
     Active Substance: HYDROCODONE
  9. SELENIUM [Concomitant]
     Active Substance: SELENIUM
  10. CRANBERRY. [Concomitant]
     Active Substance: CRANBERRY
  11. VITAMIN C [Concomitant]
     Active Substance: ASCORBIC ACID
  12. LUTEIN [Concomitant]
     Active Substance: LUTEIN
  13. BENADRYL ALG [Concomitant]
  14. CEPHALEXIN. [Concomitant]
     Active Substance: CEPHALEXIN
  15. SIMETHICONE (DIMETHICONE) [Concomitant]
     Active Substance: DIMETHICONE
  16. LOPERAMIDE [Concomitant]
     Active Substance: LOPERAMIDE
  17. NITROFUR MAC [Concomitant]
     Active Substance: NITROFURANTOIN
  18. KEFLEX [Suspect]
     Active Substance: CEPHALEXIN
     Indication: PRODUCT USED FOR UNKNOWN INDICATION
  19. ACETAMINOPHEN. [Concomitant]
     Active Substance: ACETAMINOPHEN
  20. LORATADINE. [Concomitant]
     Active Substance: LORATADINE
  21. VITAMIN B12 [Concomitant]
     Active Substance: CYANOCOBALAMIN
  22. CLONIDINE. [Concomitant]
     Active Substance: CLONIDINE
  23. COENZYME Q10 [Concomitant]
     Active Substance: DIETARY SUPPLEMENT\UBIDECARENONE
  24. BIOTIN [Concomitant]
     Active Substance: BIOTIN
  25. GLUCOSAMINE [Concomitant]
     Active Substance: GLUCOSAMINE
  26. IMODIUM [Concomitant]
     Active Substance: LOPERAMIDE HYDROCHLORIDE
  27. HYDROCODONE BITARTRATE AND ACETAMINOPHEN [Concomitant]
     Active Substance: ACETAMINOPHEN\HYDROCODONE BITARTRATE

REACTIONS (6)
  - Haemoglobin abnormal [Recovered/Resolved]
  - Product dose omission issue [Unknown]
  - Vomiting [Recovered/Resolved]
  - Urinary tract infection [Unknown]
  - Fistula [Unknown]
  - Gastroenteritis [Recovered/Resolved]

NARRATIVE: CASE EVENT DATE: 2021
